FAERS Safety Report 5654426-9 (Version None)
Quarter: 2008Q1

REPORT INFORMATION
  Report Type: 
  Country: None (occurrence: None)
  Receive Date: 20080305
  Receipt Date: 20080227
  Transmission Date: 20080703
  Serious: Yes (Death, Hospitalization)
  Sender: FDA-Public Use
  Company Number: AMAN20080003

PATIENT
  Age: 30 Year
  Sex: Female

DRUGS (3)
  1. AMANTADINE HYDROCHLORIDE [Suspect]
     Dosage: 100 MG, OER ORAL
     Route: 048
     Dates: start: 20070101, end: 20070101
  2. ZIPRASIDONE TABLETS [Suspect]
     Dosage: 60 MG, PER ORAL
     Route: 048
     Dates: start: 20070101, end: 20070101
  3. IBUPROFEN TABLETS [Suspect]
     Indication: PAIN
     Dosage: 600 MG, PER ORAL
     Route: 048
     Dates: start: 20070101, end: 20070101

REACTIONS (21)
  - BLOOD POTASSIUM DECREASED [None]
  - DEEP VEIN THROMBOSIS [None]
  - DISSEMINATED INTRAVASCULAR COAGULATION [None]
  - DRUG INTERACTION [None]
  - ECCHYMOSIS [None]
  - ELECTROCARDIOGRAM QT PROLONGED [None]
  - FALL [None]
  - HAEMODYNAMIC INSTABILITY [None]
  - INTENTIONAL OVERDOSE [None]
  - LETHARGY [None]
  - LIMB INJURY [None]
  - LOSS OF CONSCIOUSNESS [None]
  - LUNG INFILTRATION [None]
  - NEUROLOGICAL SYMPTOM [None]
  - PULMONARY EMBOLISM [None]
  - SINUS BRADYCARDIA [None]
  - SUICIDAL IDEATION [None]
  - TORSADE DE POINTES [None]
  - UROSEPSIS [None]
  - VENTRICULAR EXTRASYSTOLES [None]
  - VENTRICULAR TACHYCARDIA [None]
